FAERS Safety Report 4930060-0 (Version None)
Quarter: 2006Q1

REPORT INFORMATION
  Report Type: 
  Country: None (occurrence: None)
  Receive Date: 20060228
  Receipt Date: 20060210
  Transmission Date: 20060701
  Serious: Yes (Hospitalization)
  Sender: FDA-Public Use
  Company Number: DE200602000577

PATIENT
  Age: 69 Year
  Sex: Female

DRUGS (11)
  1. CYMBALTA [Suspect]
     Indication: DEPRESSION
     Dosage: 30 MG, 2/D, ORAL
     Route: 048
     Dates: end: 20060131
  2. PANTOPRAZOLE SODIUM [Concomitant]
  3. DIPYRONE TAB [Concomitant]
  4. ACETYLCYSTEINE [Concomitant]
  5. CERTOPARIN SODIUM (HEPARIN-FRACTION, SODIUM SALT) [Concomitant]
  6. PIRITRAMIDE (PIRITRAMIDE) [Concomitant]
  7. MDOPAR (BENSERAZIDE HYDROCHLORIDE, LEVODOPA) [Concomitant]
  8. RAMIPRIL [Concomitant]
  9. HCT (HYDROCHLOROTHIAZIDE) [Concomitant]
  10. CABERGOLINE [Concomitant]
  11. TRIMIPRAMINE MALEATE [Concomitant]

REACTIONS (4)
  - FALL [None]
  - FEMORAL NECK FRACTURE [None]
  - HYPONATRAEMIA [None]
  - SOMNOLENCE [None]
